FAERS Safety Report 15089164 (Version 1)
Quarter: 2018Q2

REPORT INFORMATION
  Report Type: Spontaneous
  Country: US (occurrence: US)
  Receive Date: 20180629
  Receipt Date: 20180629
  Transmission Date: 20180711
  Serious: No
  Sender: FDA-Public Use
  Company Number: US-SA-2018SA174131

PATIENT
  Age: 76 Year
  Sex: Male

DRUGS (1)
  1. DUPILUMAB [Suspect]
     Active Substance: DUPILUMAB
     Indication: DERMATITIS ATOPIC
     Dosage: 300 MG, QOW
     Route: 058
     Dates: start: 201804

REACTIONS (8)
  - Skin induration [Unknown]
  - Bite [Unknown]
  - Erythema [Unknown]
  - Ephelides [Unknown]
  - Peripheral swelling [Unknown]
  - Eye swelling [Unknown]
  - Pruritus [Unknown]
  - Skin swelling [Unknown]

NARRATIVE: CASE EVENT DATE: 201806
